FAERS Safety Report 5299433-3 (Version None)
Quarter: 2007Q2

REPORT INFORMATION
  Report Type: 
  Country: None (occurrence: None)
  Receive Date: 20070417
  Receipt Date: 20070409
  Transmission Date: 20071010
  Serious: Yes (Life-Threatening)
  Sender: FDA-Public Use
  Company Number: CA-BAXTER-2007BH003528

PATIENT
  Age: 13 Year

DRUGS (1)
  1. HEPARIN SODIUM [Suspect]
     Indication: PULMONARY EMBOLISM
     Dosage: DOSE UNIT:UNITS PER KILOGRAM
     Route: 065

REACTIONS (1)
  - RETROPERITONEAL HAEMATOMA [None]
